FAERS Safety Report 10057456 (Version 1)
Quarter: 2014Q2

REPORT INFORMATION
  Report Type: Spontaneous
  Country: US (occurrence: US)
  Receive Date: 20140403
  Receipt Date: 20140403
  Transmission Date: 20141212
  Serious: No
  Sender: FDA-Public Use
  Company Number: US-TEVA-473270USA

PATIENT
  Sex: Male

DRUGS (1)
  1. CLARAVIS [Suspect]
     Dates: start: 20131011, end: 20140201

REACTIONS (3)
  - Irritability [Unknown]
  - Mental disorder [Unknown]
  - Inappropriate schedule of drug administration [Unknown]
